FAERS Safety Report 9368744 (Version 2)
Quarter: 2013Q3

REPORT INFORMATION
  Report Type: Report from Study
  Country: AR (occurrence: AR)
  Receive Date: 20130626
  Receipt Date: 20130703
  Transmission Date: 20140515
  Serious: Yes (Death, Other)
  Sender: FDA-Public Use
  Company Number: AR-ROCHE-1240969

PATIENT
  Age: 77 Year
  Sex: Female

DRUGS (2)
  1. RANIBIZUMAB [Suspect]
     Indication: MACULOPATHY
     Route: 031
  2. GALVUS [Concomitant]
     Indication: DIABETES MELLITUS

REACTIONS (4)
  - Varicose vein ruptured [Fatal]
  - Haemorrhage [Fatal]
  - Varicose vein [Unknown]
  - Drug ineffective [Unknown]
